FAERS Safety Report 5224959-8 (Version None)
Quarter: 2007Q1

REPORT INFORMATION
  Report Type: 
  Country: None (occurrence: None)
  Receive Date: 20070126
  Receipt Date: 20070115
  Transmission Date: 20070707
  Serious: Yes (Hospitalization)
  Sender: FDA-Public Use
  Company Number: HQWYE732517JAN07

PATIENT
  Age: 50 Year
  Sex: Female

DRUGS (3)
  1. EFFEXOR XR [Suspect]
     Dosage: ^OVERDOSE AMOUNT 1875 MG^
     Route: 048
     Dates: start: 20011201, end: 20011201
  2. ALCOHOL (ETHANOL) [Suspect]
     Dosage: OVERDOSE AMOUNT
     Dates: start: 20011201, end: 20011201
  3. LORAZEPAM (LORAZEPAM, UNSPEC) [Suspect]
     Dosage: 60 MG OVERDOSE AMOUNT
     Dates: start: 20011201, end: 20011201

REACTIONS (4)
  - ALCOHOL POISONING [None]
  - HYPOTONIA [None]
  - MYDRIASIS [None]
  - OVERDOSE [None]
